FAERS Safety Report 5947905-8 (Version None)
Quarter: 2008Q4

REPORT INFORMATION
  Report Type: 
  Country: None (occurrence: None)
  Receive Date: 20081111
  Receipt Date: 20080808
  Transmission Date: 20090506
  Serious: No
  Sender: FDA-Public Use
  Company Number: A0741804A

PATIENT
  Sex: Male

DRUGS (1)
  1. TREXIMET [Suspect]
     Indication: MIGRAINE
     Dates: start: 20080201

REACTIONS (1)
  - DRUG INEFFECTIVE [None]
